FAERS Safety Report 6611709-3 (Version None)
Quarter: 2010Q1

REPORT INFORMATION
  Report Type: 
  Country: None (occurrence: None)
  Receive Date: 20100223
  Receipt Date: 20100208
  Transmission Date: 20100710
  Serious: Yes (Death)
  Sender: FDA-Public Use
  Company Number: 2010000500

PATIENT
  Age: 65 Year

DRUGS (12)
  1. ERLOTINIB (ERLOTINIB) (TABLET) [Suspect]
     Indication: GLIOBLASTOMA
     Dosage: (150 MG),ORAL
     Route: 048
     Dates: start: 20091130, end: 20091219
  2. BEVACIZUMAB [Suspect]
     Indication: GLIOBLASTOMA
     Dosage: (10 MG/KG)
     Dates: start: 20091210
  3. DECADRON [Concomitant]
  4. CELEXA [Concomitant]
  5. KEPPRA [Concomitant]
  6. PEPCID [Concomitant]
  7. IBUPROFEN [Concomitant]
  8. THYROID HORMONE NOS [Concomitant]
  9. MAGNESIUM CITRATE (MAGNESIUM CITRATE) [Concomitant]
  10. BACTRIM DS [Concomitant]
  11. COLACE (DOCUSATE SODIUM) [Concomitant]
  12. SENNA (SENNA) [Concomitant]

REACTIONS (1)
  - DEATH [None]
